FAERS Safety Report 6032592-3 (Version None)
Quarter: 2009Q1

REPORT INFORMATION
  Report Type: 
  Country: None (occurrence: None)
  Receive Date: 20090107
  Receipt Date: 20081224
  Transmission Date: 20090719
  Serious: Yes (Hospitalization)
  Sender: FDA-Public Use
  Company Number: SPV1-2008-02005

PATIENT
  Age: 41 Year
  Sex: Male
  Weight: 57.6 kg

DRUGS (8)
  1. ELAPRASE [Suspect]
     Indication: MUCOPOLYSACCHARIDOSIS II
     Dosage: 30 MG, 1X/WEEK,
     Dates: start: 20060831
  2. ALBUTEROL [Concomitant]
  3. FLUOCORTOLONE [Concomitant]
  4. LISINOPRIL [Concomitant]
  5. LORATADINE [Concomitant]
  6. ATORVASTATIN CALCIUM [Concomitant]
  7. MIRAPEX [Concomitant]
  8. LYRICA [Concomitant]

REACTIONS (2)
  - CEREBROVASCULAR ACCIDENT [None]
  - MASS [None]
